FAERS Safety Report 24905733 (Version 1)
Quarter: 2025Q1

REPORT INFORMATION
  Report Type: Report from Study
  Country: US (occurrence: US)
  Receive Date: 20250130
  Receipt Date: 20250130
  Transmission Date: 20250409
  Serious: No
  Sender: HRA PHARMA
  Company Number: US-ORG100014127-2024000335

PATIENT
  Age: 6 Month
  Sex: Female

DRUGS (4)
  1. METOPIRONE [Suspect]
     Active Substance: METYRAPONE
     Indication: Cushing^s syndrome
     Dosage: 40 MG VIA G TUBE TWICE DAILY
     Route: 048
  2. DIGOXIN SOL 50MCG/ML [Concomitant]
     Indication: Product used for unknown indication
  3. METHIMAZOLE TAB 10MG [Concomitant]
     Indication: Product used for unknown indication
  4. PROPRANOLOL SOL 20MG/5ML [Concomitant]
     Indication: Product used for unknown indication

REACTIONS (3)
  - Wrong technique in product usage process [Unknown]
  - Incorrect route of product administration [Unknown]
  - Off label use [Unknown]
